FAERS Safety Report 6412636-7 (Version None)
Quarter: 2009Q4

REPORT INFORMATION
  Report Type: 
  Country: None (occurrence: None)
  Receive Date: 20091023
  Receipt Date: 20091014
  Transmission Date: 20100525
  Serious: Yes (Other)
  Sender: FDA-Public Use
  Company Number: PHEH2009US12894

PATIENT
  Sex: Male
  Weight: 72 kg

DRUGS (7)
  1. ZOMETA [Suspect]
     Indication: NON-SMALL CELL LUNG CANCER METASTATIC
     Dosage: 4 MG EVERY MONTH
     Route: 042
     Dates: end: 20090921
  2. PREDNISONE [Suspect]
     Dosage: 20 MG, QOD
     Route: 048
  3. NAVELBINE ^ROBAPHARM^ [Suspect]
     Indication: LUNG NEOPLASM MALIGNANT
     Dosage: UNK, EVERY WEEK
     Route: 042
     Dates: start: 20090205
  4. DECADRON                                /CAN/ [Concomitant]
     Indication: LUNG NEOPLASM MALIGNANT
     Dosage: UNK, EVERY WEEK
     Route: 042
     Dates: start: 20090205
  5. NEURONTIN [Concomitant]
     Dosage: UNK, AT BEDTIME
     Route: 048
  6. PERCOCET [Concomitant]
     Dosage: UNK, Q4 HRS PRN
     Route: 048
  7. ALOXI [Concomitant]
     Indication: LUNG NEOPLASM MALIGNANT
     Dosage: UNK, EVERY WEEK
     Route: 042

REACTIONS (5)
  - DENTAL NECROSIS [None]
  - GINGIVITIS [None]
  - MUCOSAL INFLAMMATION [None]
  - ORAL PAIN [None]
  - OSTEONECROSIS [None]
